FAERS Safety Report 6988050-2 (Version None)
Quarter: 2010Q3

REPORT INFORMATION
  Report Type: 
  Country: None (occurrence: None)
  Receive Date: 20100916
  Receipt Date: 20100908
  Transmission Date: 20110219
  Serious: Yes (Death)
  Sender: FDA-Public Use
  Company Number: A0871877A

PATIENT
  Age: 78 Year
  Sex: Female
  Weight: 57.7 kg

DRUGS (6)
  1. AVANDIA [Suspect]
     Indication: DIABETES MELLITUS
     Route: 048
     Dates: start: 20050501, end: 20070228
  2. METFORMIN [Concomitant]
  3. SEREVENT [Concomitant]
  4. FOSAMAX [Concomitant]
  5. ALBUTEROL [Concomitant]
  6. PROZAC [Concomitant]

REACTIONS (1)
  - MYOCARDIAL INFARCTION [None]
